FAERS Safety Report 19427834 (Version 1)
Quarter: 2021Q2

REPORT INFORMATION
  Report Type: Other
  Country: US (occurrence: US)
  Receive Date: 20210616
  Receipt Date: 20210616
  Transmission Date: 20210717
  Serious: No
  Sender: FDA-Public Use
  Company Number: US-ROCHE-2642390

PATIENT
  Age: 48 Year
  Sex: Male

DRUGS (14)
  1. HYDROXYCHLOROQUINE [Concomitant]
     Active Substance: HYDROXYCHLOROQUINE
  2. GUAIFENESIN. [Concomitant]
     Active Substance: GUAIFENESIN
  3. ATROVENT [Concomitant]
     Active Substance: IPRATROPIUM BROMIDE
  4. MEROPENEM. [Concomitant]
     Active Substance: MEROPENEM
  5. AZITHROMYCIN ANHYDROUS. [Concomitant]
     Active Substance: AZITHROMYCIN ANHYDROUS
  6. VITAMIN C [Concomitant]
     Active Substance: ASCORBIC ACID
  7. DEXAMETHASONE. [Concomitant]
     Active Substance: DEXAMETHASONE
  8. ALBUTEROL. [Concomitant]
     Active Substance: ALBUTEROL
  9. ZINC. [Concomitant]
     Active Substance: ZINC
  10. ACETAMINOPHEN. [Concomitant]
     Active Substance: ACETAMINOPHEN
  11. CEFEPIME [Concomitant]
     Active Substance: CEFEPIME HYDROCHLORIDE
  12. ACTEMRA [Suspect]
     Active Substance: TOCILIZUMAB
     Indication: COVID-19
     Dosage: 2 DOSES: ONE DOSE WAS ADMINISTERED DURING THE NIGHT OF DAY 1, AND A SUBSEQUENT DOSE WAS ADMINISTERED
     Route: 042
  13. MUCOMYST [Concomitant]
     Active Substance: ACETYLCYSTEINE
  14. METHYLPREDNISOLONE. [Concomitant]
     Active Substance: METHYLPREDNISOLONE

REACTIONS (3)
  - Intentional product use issue [Unknown]
  - No adverse event [Unknown]
  - Off label use [Unknown]
